FAERS Safety Report 16892816 (Version 1)
Quarter: 2019Q4

REPORT INFORMATION
  Report Type: Spontaneous
  Country: TR (occurrence: TR)
  Receive Date: 20191007
  Receipt Date: 20191007
  Transmission Date: 20200122
  Serious: Yes (Other)
  Sender: FDA-Public Use
  Company Number: TR-BIOMARINAP-TR-2019-126044

PATIENT

DRUGS (1)
  1. NAGLAZYME [Suspect]
     Active Substance: GALSULFASE
     Indication: MUCOPOLYSACCHARIDOSIS VI
     Route: 065

REACTIONS (5)
  - Tracheomalacia [Recovered/Resolved]
  - Upper airway obstruction [Recovered/Resolved]
  - Aortic dilatation [Recovered/Resolved]
  - Haemorrhage [Recovered/Resolved]
  - Excessive granulation tissue [Recovered/Resolved]
